FAERS Safety Report 25792171 (Version 1)
Quarter: 2025Q3

REPORT INFORMATION
  Report Type: Spontaneous
  Country: US (occurrence: US)
  Receive Date: 20250911
  Receipt Date: 20250911
  Transmission Date: 20251020
  Serious: No
  Sender: SANOFI AVENTIS
  Company Number: US-SA-2025SA270017

PATIENT
  Age: 62 Year
  Sex: Male

DRUGS (6)
  1. DUPIXENT [Suspect]
     Active Substance: DUPILUMAB
     Indication: Dermatitis atopic
     Route: 058
     Dates: start: 20250828, end: 20250828
  2. BUMETANIDE [Concomitant]
     Active Substance: BUMETANIDE
  3. LORAZEPAM [Concomitant]
     Active Substance: LORAZEPAM
  4. OMNIPAQUE [Concomitant]
     Active Substance: IOHEXOL
  5. RINVOQ [Concomitant]
     Active Substance: UPADACITINIB
  6. RINVOQ [Concomitant]
     Active Substance: UPADACITINIB

REACTIONS (1)
  - Sleep disorder due to a general medical condition [Unknown]

NARRATIVE: CASE EVENT DATE: 20250101
